FAERS Safety Report 4378381-7 (Version None)
Quarter: 2004Q2

REPORT INFORMATION
  Report Type: 
  Country: None (occurrence: None)
  Receive Date: 20040616
  Receipt Date: 20040408
  Transmission Date: 20050107
  Serious: Yes (Other)
  Sender: FDA-Public Use
  Company Number: US-MERCK-0404USA01027

PATIENT
  Age: 47 Year
  Sex: Female

DRUGS (1)
  1. FOSAMAX [Suspect]
     Indication: OSTEOPENIA
     Route: 048
     Dates: start: 20040218, end: 20040218

REACTIONS (6)
  - CHEST PAIN [None]
  - DIZZINESS [None]
  - MOUTH ULCERATION [None]
  - NAUSEA [None]
  - OESOPHAGEAL PAIN [None]
  - THROAT IRRITATION [None]
